FAERS Safety Report 18397611 (Version 1)
Quarter: 2020Q4

REPORT INFORMATION
  Report Type: Spontaneous
  Country: US (occurrence: US)
  Receive Date: 20201019
  Receipt Date: 20201019
  Transmission Date: 20210114
  Serious: No
  Sender: FDA-Public Use
  Company Number: None

PATIENT
  Age: 67 Year
  Sex: Male

DRUGS (1)
  1. IMATINIB MES TAB 100MG [Suspect]
     Active Substance: IMATINIB MESYLATE
     Route: 048
     Dates: start: 202004

REACTIONS (4)
  - Skin toxicity [None]
  - Rash erythematous [None]
  - Skin exfoliation [None]
  - Oedema peripheral [None]

NARRATIVE: CASE EVENT DATE: 20200814
